FAERS Safety Report 6697143-9 (Version None)
Quarter: 2010Q2

REPORT INFORMATION
  Report Type: 
  Country: None (occurrence: None)
  Receive Date: 20100426
  Receipt Date: 20100414
  Transmission Date: 20101027
  Serious: Yes (Disabling)
  Sender: FDA-Public Use
  Company Number: DE-PFIZER INC-2010047060

PATIENT
  Age: 30 Year
  Sex: Male
  Weight: 79 kg

DRUGS (2)
  1. LYRICA [Suspect]
     Indication: STRESS
     Dosage: 75 MG, 2X/DAY
     Route: 048
     Dates: start: 20091110
  2. LYRICA [Suspect]
     Dosage: 150 MG, 2X/DAY
     Route: 048
     Dates: end: 20100104

REACTIONS (4)
  - ACCOMMODATION DISORDER [None]
  - DRY EYE [None]
  - EYE PAIN [None]
  - PHOTOPHOBIA [None]
